FAERS Safety Report 6151395-2 (Version None)
Quarter: 2009Q2

REPORT INFORMATION
  Report Type: 
  Country: None (occurrence: None)
  Receive Date: 20090410
  Receipt Date: 20090407
  Transmission Date: 20091009
  Serious: Yes (Other)
  Sender: FDA-Public Use
  Company Number: US-BIOGENIDEC-2008BI034586

PATIENT
  Age: 48 Year
  Sex: Female

DRUGS (1)
  1. TYSABRI [Suspect]
     Indication: MULTIPLE SCLEROSIS
     Route: 042
     Dates: start: 20070801, end: 20080801

REACTIONS (8)
  - BLINDNESS [None]
  - CLUMSINESS [None]
  - FAECAL INCONTINENCE [None]
  - FATIGUE [None]
  - INFLUENZA [None]
  - MUSCULAR WEAKNESS [None]
  - PITUITARY TUMOUR [None]
  - SENSATION OF HEAVINESS [None]
